FAERS Safety Report 21419145 (Version 2)
Quarter: 2022Q4

REPORT INFORMATION
  Report Type: Spontaneous
  Country: ES (occurrence: ES)
  Receive Date: 20221006
  Receipt Date: 20221019
  Transmission Date: 20230112
  Serious: Yes (Other)
  Sender: FDA-Public Use
  Company Number: ES-TEVA-2022-ES-2080264

PATIENT
  Age: 58 Year
  Sex: Male

DRUGS (6)
  1. SUNITINIB [Suspect]
     Active Substance: SUNITINIB
     Indication: Renal cell carcinoma stage IV
     Dosage: 50 MILLIGRAM DAILY; FOUR WEEKS ON/TWO OFF
     Route: 065
  2. SUNITINIB [Suspect]
     Active Substance: SUNITINIB
     Indication: Metastases to lymph nodes
  3. SUNITINIB [Suspect]
     Active Substance: SUNITINIB
     Indication: Metastases to bone
  4. DURVALUMAB [Suspect]
     Active Substance: DURVALUMAB
     Indication: Renal cell carcinoma stage IV
     Dosage: ON DAY 1
     Route: 065
  5. DURVALUMAB [Suspect]
     Active Substance: DURVALUMAB
     Indication: Metastases to bone
  6. DURVALUMAB [Suspect]
     Active Substance: DURVALUMAB
     Indication: Metastases to lymph nodes

REACTIONS (2)
  - Diffuse uveal melanocytic proliferation [Recovered/Resolved]
  - Drug ineffective [Unknown]
